FAERS Safety Report 5144497-0 (Version None)
Quarter: 2006Q4

REPORT INFORMATION
  Report Type: 
  Country: None (occurrence: None)
  Receive Date: 20061106
  Receipt Date: 20051031
  Transmission Date: 20070319
  Serious: Yes (Other)
  Sender: FDA-Public Use
  Company Number: DE-BOEHRINGER INGELHEIM PHARMACEUTICALS, INC.-2005-BP-19521YA

PATIENT
  Sex: Male

DRUGS (4)
  1. OMNIC CAPSULES [Suspect]
     Indication: URINARY TRACT DISORDER
     Route: 048
     Dates: start: 20050616, end: 20050617
  2. OMNIC CAPSULES [Suspect]
     Indication: BENIGN PROSTATIC HYPERPLASIA
  3. CANDESARTAN CILEXETIL [Concomitant]
     Indication: HYPERTENSION
  4. DICLOFENAC SODIUM [Concomitant]

REACTIONS (6)
  - DIARRHOEA [None]
  - DIZZINESS [None]
  - DRUG INEFFECTIVE [None]
  - DRUG TOLERANCE DECREASED [None]
  - GASTROINTESTINAL PAIN [None]
  - HAEMATOCHEZIA [None]
